FAERS Safety Report 26153193 (Version 1)
Quarter: 2025Q4

REPORT INFORMATION
  Report Type: Spontaneous
  Country: US (occurrence: US)
  Receive Date: 20251214
  Receipt Date: 20251214
  Transmission Date: 20260117
  Serious: No
  Sender: Atnahs Healthcare
  Company Number: US-ATNAHS-2025-PMNV-US000829

PATIENT

DRUGS (1)
  1. VALIUM [Suspect]
     Active Substance: DIAZEPAM
     Indication: Product used for unknown indication
     Dosage: UNK (1 TABLET AT NIGHT, DID NOT TAPER HIM DOWN)
     Route: 065

REACTIONS (3)
  - Disability [Unknown]
  - Hypoaesthesia [Unknown]
  - Withdrawal syndrome [Unknown]
